FAERS Safety Report 12966595 (Version 2)
Quarter: 2016Q4

REPORT INFORMATION
  Report Type: Report from Study
  Country: US (occurrence: US)
  Receive Date: 20161122
  Receipt Date: 20161208
  Transmission Date: 20170207
  Serious: Yes (Other)
  Sender: FDA-Public Use
  Company Number: US-BEH-2016075435

PATIENT
  Age: 41 Year
  Sex: Female

DRUGS (1)
  1. HIZENTRA [Suspect]
     Active Substance: HUMAN IMMUNOGLOBULIN G
     Indication: PRODUCT USED FOR UNKNOWN INDICATION
     Dosage: UNK
     Route: 065
     Dates: start: 20161118, end: 20161118

REACTIONS (10)
  - Dizziness [Unknown]
  - Diarrhoea [Unknown]
  - Dyskinesia [Unknown]
  - Flatulence [Unknown]
  - Balance disorder [Unknown]
  - Pharyngeal oedema [Unknown]
  - Influenza like illness [Unknown]
  - Abdominal pain [Unknown]
  - Coordination abnormal [Unknown]
  - Musculoskeletal stiffness [Unknown]

NARRATIVE: CASE EVENT DATE: 20161118
